FAERS Safety Report 23205415 (Version 1)
Quarter: 2023Q4

REPORT INFORMATION
  Report Type: Spontaneous
  Country: FR (occurrence: FR)
  Receive Date: 20231120
  Receipt Date: 20231120
  Transmission Date: 20240110
  Serious: Yes (Hospitalization, Other)
  Sender: FDA-Public Use
  Company Number: FR-GLAXOSMITHKLINE-FR2016GSK093577

PATIENT
  Age: 50 Year
  Sex: Female
  Weight: 96 kg

DRUGS (9)
  1. LAMOTRIGINE [Suspect]
     Active Substance: LAMOTRIGINE
     Indication: Product used for unknown indication
     Dosage: 100 MILLIGRAM
     Route: 048
  2. LEVOTHYROXINE [Suspect]
     Active Substance: LEVOTHYROXINE
     Indication: Product used for unknown indication
     Dosage: UNK
     Route: 065
  3. LAMICTAL [Suspect]
     Active Substance: LAMOTRIGINE
     Indication: Depression
     Dosage: 50 MG, QD
     Route: 065
  4. LAMICTAL [Suspect]
     Active Substance: LAMOTRIGINE
     Dosage: 25 MG, QD, AT BEDTIME
     Route: 048
  5. LAMICTAL [Suspect]
     Active Substance: LAMOTRIGINE
     Dosage: 100 MG, QD
     Route: 048
  6. LORMETAZEPAM [Concomitant]
     Active Substance: LORMETAZEPAM
     Indication: Product used for unknown indication
     Dosage: 2 MG, UNK
     Route: 065
  7. ALPRAZOLAM [Concomitant]
     Active Substance: ALPRAZOLAM
     Indication: Product used for unknown indication
     Dosage: 0.5 MG
     Route: 048
  8. XANAX [Concomitant]
     Active Substance: ALPRAZOLAM
     Indication: Product used for unknown indication
     Dosage: 0.5 MG, QD, 1 TO 4
     Route: 065
  9. LORMETAZEPAM [Concomitant]
     Active Substance: LORMETAZEPAM
     Indication: Product used for unknown indication
     Dosage: UNK, QD
     Route: 065

REACTIONS (73)
  - Erythema multiforme [Recovered/Resolved with Sequelae]
  - Toxic skin eruption [Recovered/Resolved with Sequelae]
  - Herpes virus infection [Unknown]
  - Stomatitis [Unknown]
  - Odynophagia [Unknown]
  - Entropion [Recovered/Resolved]
  - Hospitalisation [Unknown]
  - Eye disorder [Unknown]
  - Corneal neovascularisation [Unknown]
  - Corneal operation [Unknown]
  - Blindness [Unknown]
  - Disability [Unknown]
  - Choking [Unknown]
  - Punctate keratitis [Unknown]
  - Sjogren^s syndrome [Unknown]
  - Symblepharon [Unknown]
  - Blindness day [Unknown]
  - Thermal burns of eye [Unknown]
  - Stevens-Johnson syndrome [Recovered/Resolved with Sequelae]
  - Toxic epidermal necrolysis [Unknown]
  - Visual acuity reduced [Not Recovered/Not Resolved]
  - Pyrexia [Unknown]
  - Pharyngeal swelling [Unknown]
  - Ligneous conjunctivitis [Unknown]
  - Decreased interest [Unknown]
  - Photophobia [Not Recovered/Not Resolved]
  - Vulval ulceration [Unknown]
  - Dry eye [Unknown]
  - Eye ulcer [Unknown]
  - Eating disorder [Recovering/Resolving]
  - Discomfort [Unknown]
  - Eye pain [Unknown]
  - Skin lesion [Unknown]
  - Noninfective gingivitis [Unknown]
  - Koebner phenomenon [Unknown]
  - Gingival disorder [Unknown]
  - Pharyngeal oedema [Unknown]
  - Ophthalmic migraine [Unknown]
  - Dysphagia [Recovering/Resolving]
  - Burning sensation mucosal [Unknown]
  - Gingival pain [Unknown]
  - Autonomic nervous system imbalance [Unknown]
  - Genital ulceration [Unknown]
  - Mouth ulceration [Recovering/Resolving]
  - Ageusia [Unknown]
  - Oral disorder [Recovering/Resolving]
  - Drug dose titration not performed [Unknown]
  - Blood blister [Recovering/Resolving]
  - Eye pruritus [Unknown]
  - Loss of personal independence in daily activities [Unknown]
  - Mucosal disorder [Unknown]
  - Food intolerance [Unknown]
  - Dysuria [Unknown]
  - Cheilitis [Recovering/Resolving]
  - Reaction to excipient [Unknown]
  - Mouth haemorrhage [Unknown]
  - Fibrosis [Not Recovered/Not Resolved]
  - Keratitis [Unknown]
  - Dyspnoea [Unknown]
  - Throat tightness [Unknown]
  - Hyperthermia [Unknown]
  - Trichiasis [Unknown]
  - Lip erosion [Unknown]
  - Tongue oedema [Unknown]
  - Visual impairment [Unknown]
  - Skin burning sensation [Unknown]
  - Vision blurred [Not Recovered/Not Resolved]
  - Ataxia [Unknown]
  - Pain [Unknown]
  - Movement disorder [Unknown]
  - Conjunctivitis [Recovering/Resolving]
  - Fatigue [Unknown]
  - Off label use [Unknown]

NARRATIVE: CASE EVENT DATE: 20160101
